FAERS Safety Report 15632526 (Version 1)
Quarter: 2018Q4

REPORT INFORMATION
  Report Type: Spontaneous
  Country: US (occurrence: US)
  Receive Date: 20181119
  Receipt Date: 20181119
  Transmission Date: 20190205
  Serious: No
  Sender: FDA-Public Use
  Company Number: None

PATIENT
  Age: 8 Year
  Sex: Female
  Weight: 22.95 kg

DRUGS (4)
  1. METHYLPHENIDATE OSM ER 18MG TAB TRI [Suspect]
     Active Substance: METHYLPHENIDATE HYDROCHLORIDE
     Indication: ATTENTION DEFICIT/HYPERACTIVITY DISORDER
     Dosage: ?          QUANTITY:30 TABLET(S);?
     Route: 048
     Dates: start: 20181114
  2. RISPERIDONE. [Concomitant]
     Active Substance: RISPERIDONE
  3. PLEXUS XFACTOR KIDS HYPERBIOTICS [Concomitant]
  4. GAUNFACINE [Concomitant]

REACTIONS (4)
  - Emotional distress [None]
  - Drug ineffective [None]
  - Product complaint [None]
  - Product substitution issue [None]

NARRATIVE: CASE EVENT DATE: 20181117
